FAERS Safety Report 20065907 (Version 1)
Quarter: 2021Q4

REPORT INFORMATION
  Report Type: Spontaneous
  Country: CH (occurrence: CH)
  Receive Date: 20211114
  Receipt Date: 20211114
  Transmission Date: 20220303
  Serious: Yes (Other)
  Sender: FDA-Public Use
  Company Number: None

PATIENT
  Age: 88 Year
  Sex: Male

DRUGS (16)
  1. AMOXICILLIN\CLAVULANATE POTASSIUM [Suspect]
     Active Substance: AMOXICILLIN\CLAVULANATE POTASSIUM
     Dosage: 2.4 GRAM DAILY; INGREDIENT (AMOXICILLIN TRIHYDRATE): 400MG; INGREDIENT (CLAVULANATE POTASSIUM): 57MG
     Dates: start: 20211023, end: 20211027
  2. CLARITHROMYCIN [Suspect]
     Active Substance: CLARITHROMYCIN
     Dosage: 1000 MILLIGRAM DAILY;
     Dates: start: 20211023, end: 20211025
  3. DAFALGAN [Suspect]
     Active Substance: ACETAMINOPHEN
     Dosage: 500 MG
     Dates: start: 20211025, end: 20211025
  4. DAFALGAN [Suspect]
     Active Substance: ACETAMINOPHEN
     Dosage: 500 MG
     Dates: start: 20211026, end: 20211026
  5. FUROSEMIDE [Concomitant]
     Active Substance: FUROSEMIDE
  6. OZEMPIC [Concomitant]
     Active Substance: SEMAGLUTIDE
  7. FOLIC ACID [Concomitant]
     Active Substance: FOLIC ACID
  8. SINTROM [Concomitant]
     Active Substance: ACENOCOUMAROL
  9. CALCIUM\CHOLECALCIFEROL [Concomitant]
     Active Substance: CALCIUM\CHOLECALCIFEROL
  10. MELATONIN [Concomitant]
     Active Substance: MELATONIN
     Dates: start: 20211024
  11. METOPROLOL [Concomitant]
     Active Substance: METOPROLOL
  12. SODIUM PICOSULFATE [Concomitant]
     Active Substance: SODIUM PICOSULFATE
  13. TAMSULOSIN HYDROCHLORIDE [Concomitant]
     Active Substance: TAMSULOSIN HYDROCHLORIDE
  14. ALBUTEROL\IPRATROPIUM [Concomitant]
     Active Substance: ALBUTEROL\IPRATROPIUM
     Dates: start: 20211025
  15. ESOMEPRAZOLE [Concomitant]
     Active Substance: ESOMEPRAZOLE
     Dosage: TREATMENT AT HOME
     Dates: end: 20211026
  16. ENOXAPARIN SODIUM [Concomitant]
     Active Substance: ENOXAPARIN SODIUM
     Dates: start: 20211024, end: 20211026

REACTIONS (2)
  - Liver function test increased [Not Recovered/Not Resolved]
  - Jaundice [Not Recovered/Not Resolved]

NARRATIVE: CASE EVENT DATE: 20211026
